FAERS Safety Report 14675781 (Version 2)
Quarter: 2018Q2

REPORT INFORMATION
  Report Type: Spontaneous
  Country: NO (occurrence: NO)
  Receive Date: 20180323
  Receipt Date: 20180503
  Transmission Date: 20180711
  Serious: Yes (Hospitalization)
  Sender: FDA-Public Use
  Company Number: NO-TEVA-2018-NO-870704

PATIENT
  Age: 69 Year
  Sex: Male

DRUGS (8)
  1. LINEZOLID. [Concomitant]
     Active Substance: LINEZOLID
     Indication: ENDOCARDITIS
     Dates: start: 20171213, end: 20180107
  2. VANCOMYCIN [Suspect]
     Active Substance: VANCOMYCIN
     Indication: ENDOCARDITIS
     Route: 065
     Dates: start: 20171219, end: 20180105
  3. CORDARONE [Concomitant]
     Active Substance: AMIODARONE HYDROCHLORIDE
     Indication: ATRIAL FIBRILLATION
     Dosage: FIRST 600 MG X 2, THEN 200 MG X 3. 25/12/2017 HE RECEIVED A BOLUS OF 300 MG FOLLOWED BY AN INFUSION
     Dates: start: 20171223, end: 20180101
  4. CEFOTAXIME [Concomitant]
     Active Substance: CEFOTAXIME SODIUM
     Indication: ENDOCARDITIS
     Dates: start: 20171212, end: 20171213
  5. RIFAMPICIN [Concomitant]
     Active Substance: RIFAMPIN
     Indication: ENDOCARDITIS
     Dates: start: 20171212, end: 20171231
  6. PREDNISOLON [Concomitant]
     Active Substance: PREDNISOLONE
     Indication: SARCOIDOSIS
     Dosage: PREDNISOLONE DOSE AT THE TIME OF ADVERSE EVENT DEBUT IS NOT STATED.
  7. SAROTEX [Concomitant]
     Active Substance: AMITRIPTYLINE HYDROCHLORIDE
     Indication: DIABETIC NEUROPATHY
  8. CLINDAMYCIN. [Concomitant]
     Active Substance: CLINDAMYCIN
     Indication: ENDOCARDITIS
     Dates: start: 20171212, end: 20171213

REACTIONS (1)
  - Linear IgA disease [Recovering/Resolving]

NARRATIVE: CASE EVENT DATE: 20171230
